FAERS Safety Report 5741200-8 (Version None)
Quarter: 2008Q2

REPORT INFORMATION
  Report Type: 
  Country: None (occurrence: None)
  Receive Date: 20080514
  Receipt Date: 20080505
  Transmission Date: 20081010
  Serious: Yes (Hospitalization)
  Sender: FDA-Public Use
  Company Number: 2008-01558

PATIENT
  Age: 64 Year
  Sex: Male

DRUGS (2)
  1. VELCADE [Suspect]
     Indication: BRONCHIOLOALVEOLAR CARCINOMA
     Dates: start: 20080204
  2. TOPOTECAN [Concomitant]

REACTIONS (2)
  - PNEUMONIA [None]
  - PNEUMOTHORAX [None]
